FAERS Safety Report 20353218 (Version 2)
Quarter: 2022Q2

REPORT INFORMATION
  Report Type: Spontaneous
  Country: US (occurrence: US)
  Receive Date: 20220119
  Receipt Date: 20220609
  Transmission Date: 20220721
  Serious: Yes (Other)
  Sender: FDA-Public Use
  Company Number: US-PFIZER INC-202200021158

PATIENT
  Age: 61 Year
  Sex: Female

DRUGS (4)
  1. EUCRISA [Suspect]
     Active Substance: CRISABOROLE
     Indication: Psoriasis
     Dosage: UNK
     Dates: start: 20211126
  2. EUCRISA [Suspect]
     Active Substance: CRISABOROLE
     Dosage: UNK, 2X/DAY, 30 DAYS, 60 GRAMS, 11 REFILLS. 1 APPLICATION TOPICAL 2 TIMES A DAY
     Route: 061
  3. BETAMETHASONE DIPROPIONATE [Concomitant]
     Active Substance: BETAMETHASONE DIPROPIONATE
     Dosage: UNK
  4. CALCIPOTRIENE [Concomitant]
     Active Substance: CALCIPOTRIENE
     Dosage: UNK

REACTIONS (6)
  - Skin exfoliation [Unknown]
  - Hand dermatitis [Unknown]
  - Condition aggravated [Unknown]
  - Nail disorder [Unknown]
  - Papule [Unknown]
  - Off label use [Unknown]
